FAERS Safety Report 4664140-4 (Version None)
Quarter: 2005Q2

REPORT INFORMATION
  Report Type: 
  Country: None (occurrence: None)
  Receive Date: 20050516
  Receipt Date: 20050516
  Transmission Date: 20051028
  Serious: Yes (Hospitalization)
  Sender: FDA-Public Use
  Company Number: None

PATIENT
  Age: 54 Year
  Sex: Male
  Weight: 73.4827 kg

DRUGS (10)
  1. MORPHINE [Suspect]
     Indication: PAIN
     Dosage: 45MG  BID ORAL
     Route: 048
     Dates: start: 20050211, end: 20050222
  2. CYCLOBENZAPRINE  20MG [Suspect]
     Indication: HYPOTONIA
     Dosage: 20MG TID ORAL
     Route: 048
     Dates: start: 20050219, end: 20050223
  3. IRON [Concomitant]
  4. VIT C TAB [Concomitant]
  5. OMEPRAZOLE [Concomitant]
  6. ZOLOFT [Concomitant]
  7. COLACE [Concomitant]
  8. CLONIDINE [Concomitant]
  9. COUMADIN [Concomitant]
  10. TYLENOL W/ CODEINE NO. 3 [Concomitant]

REACTIONS (8)
  - AGITATION [None]
  - CONFUSIONAL STATE [None]
  - CONSTIPATION [None]
  - DELIRIUM [None]
  - HALLUCINATION [None]
  - MENTAL STATUS CHANGES [None]
  - MYOCARDIAL INFARCTION [None]
  - SEROTONIN SYNDROME [None]
